FAERS Safety Report 11349095 (Version 1)
Quarter: 2015Q3

REPORT INFORMATION
  Report Type: Spontaneous
  Country: US (occurrence: US)
  Receive Date: 20150807
  Receipt Date: 20150807
  Transmission Date: 20151125
  Serious: Yes (Other)
  Sender: FDA-Public Use
  Company Number: US-JNJFOC-20150718005

PATIENT
  Age: 57 Year
  Sex: Female
  Weight: 70.31 kg

DRUGS (3)
  1. BENADRYL [Suspect]
     Active Substance: DIPHENHYDRAMINE HYDROCHLORIDE
     Indication: DRUG HYPERSENSITIVITY
     Dosage: AS NEEDED
     Route: 048
     Dates: start: 20150529, end: 20150530
  2. REMICADE [Suspect]
     Active Substance: INFLIXIMAB
     Indication: PRODUCT USED FOR UNKNOWN INDICATION
     Route: 065
     Dates: start: 20150528
  3. BENADRYL [Suspect]
     Active Substance: DIPHENHYDRAMINE HYDROCHLORIDE
     Route: 048

REACTIONS (5)
  - Drug ineffective for unapproved indication [Unknown]
  - Urticaria [Unknown]
  - Hypersensitivity [None]
  - Product use issue [Unknown]
  - Product quality issue [None]

NARRATIVE: CASE EVENT DATE: 201505
